FAERS Safety Report 17800493 (Version 1)
Quarter: 2020Q2

REPORT INFORMATION
  Report Type: Spontaneous
  Country: IL (occurrence: IL)
  Receive Date: 20200519
  Receipt Date: 20200519
  Transmission Date: 20200714
  Serious: Yes (Other)
  Sender: FDA-Public Use
  Company Number: IL-BAXTER-2020BAX010170

PATIENT
  Age: 44 Year
  Sex: Female

DRUGS (8)
  1. OLAPARIB. [Suspect]
     Active Substance: OLAPARIB
     Indication: BREAST CANCER
     Route: 065
     Dates: start: 201804
  2. DOXORUBICIN [Suspect]
     Active Substance: DOXORUBICIN
     Indication: BREAST CANCER STAGE I
     Dosage: PAST- AC THERAPY, 4 CYCLES
     Route: 065
  3. LETROZOLE. [Suspect]
     Active Substance: LETROZOLE
     Indication: BREAST CANCER
     Dosage: IBRANCE IN COMBINATION WITH LETROZOLE
     Route: 065
     Dates: start: 201612, end: 201708
  4. FULVESTRANT. [Suspect]
     Active Substance: FULVESTRANT
     Indication: BREAST CANCER
     Dosage: IBRANCE IN COMBINATION WITH FULVESTRANT
     Route: 065
     Dates: start: 201709, end: 201804
  5. IBRANCE [Suspect]
     Active Substance: PALBOCICLIB
     Indication: BREAST CANCER
     Dosage: IBRANCE IN COMBINATION WITH LETROZOLE
     Route: 065
     Dates: start: 201612, end: 201708
  6. IBRANCE [Suspect]
     Active Substance: PALBOCICLIB
     Dosage: IBRANCE IN COMBINATION WITH FULVESTRANT
     Route: 065
     Dates: start: 201709, end: 201804
  7. ENDOXAN-1G [Suspect]
     Active Substance: CYCLOPHOSPHAMIDE
     Indication: BREAST CANCER STAGE I
     Dosage: PAST- AC THERAPY, 4 CYCLES
     Route: 065
  8. TAMOXIFEN [Suspect]
     Active Substance: TAMOXIFEN
     Indication: BREAST CANCER STAGE I
     Route: 065

REACTIONS (5)
  - Metastases to liver [Unknown]
  - Breast cancer recurrent [Unknown]
  - Metastases to lymph nodes [Unknown]
  - Metastases to bone [Unknown]
  - Neoplasm progression [Unknown]
